FAERS Safety Report 8798966 (Version 1)
Quarter: 2012Q4

REPORT INFORMATION
  Report Type: Spontaneous
  Country: US (occurrence: None)
  Receive Date: 20120918
  Receipt Date: 20120918
  Transmission Date: 20130627
  Serious: Yes (Other)
  Sender: FDA-Public Use
  Company Number: None

PATIENT
  Age: 77 Year
  Sex: Male

DRUGS (2)
  1. LIDOCAINE\PHENYLEPHRINE [Suspect]
     Indication: PROPHYLAXIS
     Dosage: 1 syringe once intraocular
     Route: 031
     Dates: start: 20120822, end: 20120822
  2. LIDOCAINE\PHENYLEPHRINE [Suspect]
     Indication: FLOPPY IRIS SYNDROME
     Dosage: 1 syringe once intraocular
     Route: 031
     Dates: start: 20120822, end: 20120822

REACTIONS (2)
  - Reaction to preservatives [None]
  - Product label issue [None]
